FAERS Safety Report 16308414 (Version 5)
Quarter: 2019Q2

REPORT INFORMATION
  Report Type: Spontaneous
  Country: NL (occurrence: NL)
  Receive Date: 20190514
  Receipt Date: 20190618
  Transmission Date: 20190711
  Serious: No
  Sender: FDA-Public Use
  Company Number: NL-PFIZER INC-2018513605

PATIENT
  Age: 40 Year
  Sex: Female

DRUGS (22)
  1. COLECALCIFEROL [Concomitant]
     Active Substance: CHOLECALCIFEROL
     Dosage: 25 IU/ML, ONCE DAILY
     Route: 048
  2. SOMAVERT [Suspect]
     Active Substance: PEGVISOMANT
     Dosage: 40 MG, ONCE DAILY
     Route: 058
  3. DIAZEPAM ABC [Concomitant]
     Active Substance: DIAZEPAM
     Dosage: 4 MG/ML,, TWICE DAILY
     Route: 054
  4. DESMOPRESSINE [DESMOPRESSIN] [Concomitant]
     Dosage: 0.2 MG, UNK
     Route: 048
  5. SOMATOLINE [Concomitant]
     Active Substance: ESCIN\LEVOTHYROXINE
     Dosage: UNK, EVERY FOUR WEEKS
  6. LANREOTIDE [Concomitant]
     Active Substance: LANREOTIDE
     Dosage: 300 MG/ML, EVERY 4 WEEKS
     Route: 048
  7. SOMAVERT [Suspect]
     Active Substance: PEGVISOMANT
     Dosage: 30 MG, ONCE DAILY
     Route: 058
  8. DIAZEPAM ABC [Concomitant]
     Active Substance: DIAZEPAM
     Dosage: 10 MG, ONCE DAILY
     Route: 048
  9. ETHINYLESTRADIOL/DROSPIRENONE [Concomitant]
     Active Substance: DROSPIRENONE\ETHINYL ESTRADIOL
     Dosage: 30 UG/ 3 MG, UNK
     Route: 048
  10. COLECALCIFEROL [Concomitant]
     Active Substance: CHOLECALCIFEROL
     Dosage: 25000 IU/ML, MONTHLY
     Route: 048
  11. CELECOXIB. [Concomitant]
     Active Substance: CELECOXIB
     Dosage: 100 MG, TWICE DAILY
     Route: 048
  12. MELATONINE [Concomitant]
     Active Substance: MELATONIN
     Dosage: 1 MG, ONCE DAILY
     Route: 048
  13. AMOXICILLINE/CLAVULAANZUUR [Concomitant]
     Active Substance: AMOXICILLIN\CLAVULANATE POTASSIUM
     Dosage: 1 DF, THRICE DAILY
     Route: 048
  14. LACTULOSE. [Concomitant]
     Active Substance: LACTULOSE
     Dosage: 15 ML, TWICE DAILY
     Route: 048
  15. MOVICOLON [Concomitant]
     Active Substance: POLYETHYLENE GLYCOL 3350\POTASSIUM CHLORIDE\SODIUM BICARBONATE\SODIUM CHLORIDE
     Dosage: 1 DF, THRICE DAILY
     Route: 048
  16. TRAMADOL. [Concomitant]
     Active Substance: TRAMADOL
     Dosage: 50 MG, THRICE DAILY
     Route: 048
  17. SOMAVERT [Suspect]
     Active Substance: PEGVISOMANT
     Indication: ACROMEGALY
     Dosage: 20 MG, CYCLIC (20 MG ON DAY 1, 20 MG ON DAY 3, 40 MG ON DAY 6, AND 40 MG AS SCHEDULED)
     Route: 058
     Dates: start: 201812
  18. SOMAVERT [Suspect]
     Active Substance: PEGVISOMANT
     Indication: BENIGN NEOPLASM
     Dosage: 20 MG, CYCLIC (20 MG ON DAY 1, 20 MG ON DAY 3, 40 MG ON DAY 6, AND 40 MG AS SCHEDULED)
     Route: 058
     Dates: start: 201812
  19. BISACODYL. [Concomitant]
     Active Substance: BISACODYL
     Dosage: 5 MG, TWICE DAILY
     Route: 048
  20. XYLOMETAZOLINE [Concomitant]
     Active Substance: XYLOMETAZOLINE
     Dosage: 1 MG/ML, FOUR TIMES DAILY
     Route: 045
  21. DROSPIRENONA+ETINILESTRADIOL [Concomitant]
     Dosage: 30 UG/ 3 MG, UNK
     Route: 048
  22. PARACETAMOL [Concomitant]
     Active Substance: ACETAMINOPHEN
     Dosage: 500 MG, UNK
     Route: 048

REACTIONS (4)
  - Nausea [Unknown]
  - Off label use [Unknown]
  - Product use issue [Unknown]
  - Headache [Unknown]

NARRATIVE: CASE EVENT DATE: 201812
